FAERS Safety Report 4583326-0 (Version None)
Quarter: 2005Q1

REPORT INFORMATION
  Report Type: 
  Country: None (occurrence: None)
  Receive Date: 20050125
  Receipt Date: 20040816
  Transmission Date: 20050727
  Serious: No
  Sender: FDA-Public Use
  Company Number: USA040259108

PATIENT
  Age: 79 Year
  Sex: Female
  Weight: 66 kg

DRUGS (3)
  1. FORTEO [Suspect]
     Indication: OSTEOPOROSIS
     Dosage: 20 UG/1 DAY
     Dates: start: 20040101
  2. MICARDIS [Concomitant]
  3. VITAMINS [Concomitant]

REACTIONS (7)
  - BONE PAIN [None]
  - CONSTIPATION [None]
  - FATIGUE [None]
  - INJECTION SITE HAEMORRHAGE [None]
  - MYALGIA [None]
  - PAIN [None]
  - SENSATION OF HEAVINESS [None]
